FAERS Safety Report 25310763 (Version 2)
Quarter: 2025Q2

REPORT INFORMATION
  Report Type: Report from Study
  Country: US (occurrence: US)
  Receive Date: 20250514
  Receipt Date: 20250604
  Transmission Date: 20250717
  Serious: Yes (Other)
  Sender: ABBVIE
  Company Number: US-ABBVIE-6255426

PATIENT
  Age: 54 Year
  Sex: Female
  Weight: 83.914 kg

DRUGS (1)
  1. RINVOQ [Suspect]
     Active Substance: UPADACITINIB
     Indication: Psoriatic arthropathy
     Dosage: UNKNOWN
     Route: 048
     Dates: start: 20250309

REACTIONS (4)
  - Multiple sclerosis relapse [Recovering/Resolving]
  - Rash [Recovered/Resolved]
  - Bradycardia [Recovered/Resolved]
  - Muscular weakness [Unknown]

NARRATIVE: CASE EVENT DATE: 20250101
